FAERS Safety Report 23556385 (Version 2)
Quarter: 2024Q1

REPORT INFORMATION
  Report Type: Spontaneous
  Country: ES (occurrence: ES)
  Receive Date: 20240223
  Receipt Date: 20240226
  Transmission Date: 20240409
  Serious: Yes (Other)
  Sender: FDA-Public Use
  Company Number: ES-JNJFOC-20240247136

PATIENT
  Age: 42 Year
  Sex: Female

DRUGS (2)
  1. SPRAVATO [Suspect]
     Active Substance: ESKETAMINE
     Indication: Product used for unknown indication
     Dosage: DOSE DAY 1-56 MG?DOSE DAY 2 -84 MG?FINAL MAINTENANCE DOSE-84 MG
  2. SPRAVATO [Suspect]
     Active Substance: ESKETAMINE
     Dosage: DOSE DAY-56 MG?DOSE DAY 2 FINAL-84 MG?MAINTENANCE DOSE-84 MG

REACTIONS (1)
  - Self-injurious ideation [Unknown]
